FAERS Safety Report 16684452 (Version 1)
Quarter: 2019Q3

REPORT INFORMATION
  Report Type: Spontaneous
  Country: GB (occurrence: GB)
  Receive Date: 20190808
  Receipt Date: 20190808
  Transmission Date: 20191004
  Serious: Yes (Hospitalization)
  Sender: FDA-Public Use
  Company Number: GB-TEVA-2019-GB-1089312

PATIENT
  Age: 80 Year
  Sex: Female

DRUGS (12)
  1. QUININE SULFATE. [Concomitant]
     Active Substance: QUININE SULFATE
  2. METFORMIN [Concomitant]
     Active Substance: METFORMIN HYDROCHLORIDE
  3. CEFALEXIN [Concomitant]
     Active Substance: CEPHALEXIN
  4. LOSARTAN. [Suspect]
     Active Substance: LOSARTAN
     Indication: ESSENTIAL HYPERTENSION
     Dosage: IN THE MORNING
     Route: 048
     Dates: start: 20180701, end: 20190606
  5. PARACETAMOL [Concomitant]
     Active Substance: ACETAMINOPHEN
  6. NITRAZEPAM [Concomitant]
     Active Substance: NITRAZEPAM
  7. SIMVASTATIN. [Concomitant]
     Active Substance: SIMVASTATIN
  8. BUMETANIDE. [Concomitant]
     Active Substance: BUMETANIDE
  9. NYSTATIN. [Concomitant]
     Active Substance: NYSTATIN
  10. EDOXABAN [Concomitant]
     Active Substance: EDOXABAN TOSYLATE
  11. CASSIA [Concomitant]
  12. MIRABEGRON [Concomitant]
     Active Substance: MIRABEGRON

REACTIONS (3)
  - Aortic stenosis [Unknown]
  - Incorrect dose administered [Unknown]
  - Orthostatic hypotension [Recovered/Resolved]

NARRATIVE: CASE EVENT DATE: 20190604
